FAERS Safety Report 10059126 (Version 2)
Quarter: 2014Q2

REPORT INFORMATION
  Report Type: Report from Study
  Country: NL (occurrence: NL)
  Receive Date: 20140404
  Receipt Date: 20140415
  Transmission Date: 20141212
  Serious: Yes (Death, Other)
  Sender: FDA-Public Use
  Company Number: PHHY2014NL040663

PATIENT
  Age: 74 Year
  Sex: Male

DRUGS (14)
  1. ACLASTA [Suspect]
     Indication: OSTEOPOROSIS
     Dosage: 5 MG, ONCE EVERY 52 WEEKS
     Route: 042
     Dates: start: 20130419
  2. OXYCONTIN [Concomitant]
     Dosage: UNK UKN, UNK
  3. OXYNORM [Concomitant]
     Dosage: UNK UKN, UNK
  4. CALCI CHEW D3 [Concomitant]
     Dosage: UNK UKN, UNK
  5. DEXAMETHASONE [Concomitant]
     Dosage: 2 MG, (2 DD 2MG)
  6. FOLIC ACID [Concomitant]
     Dosage: UNK (5MG PER WEEK)
  7. GABAPENTINE [Concomitant]
     Dosage: UNK (3 DD100)
  8. OMEPRAZOLE [Concomitant]
     Dosage: 40 MG, (1 DD 40MG)
  9. PARACETAMOL CODEINE [Concomitant]
     Dosage: UNK UKN, UNK
  10. SERETIDE [Concomitant]
     Dosage: UNK (3 DD 2)
  11. ROPINIROL [Concomitant]
     Dosage: 4 MG, (1DD 4MG)
  12. FLUTICASONE [Concomitant]
     Dosage: UNK UKN, UNK
  13. METHOTREXATE [Concomitant]
     Dosage: 20 MG,(PER WEEK)
  14. NEUPRO [Concomitant]
     Dosage: 4 MG, (4MG.24 HOURS)

REACTIONS (4)
  - Death [Fatal]
  - Brain neoplasm [Unknown]
  - Spinal compression fracture [Unknown]
  - Osteoporosis [Unknown]
